FAERS Safety Report 12633756 (Version 1)
Quarter: 2016Q3

REPORT INFORMATION
  Report Type: Spontaneous
  Country: US (occurrence: US)
  Receive Date: 20160808
  Receipt Date: 20160808
  Transmission Date: 20161109
  Serious: No
  Sender: FDA-Public Use
  Company Number: US-PFIZER INC-2016372488

PATIENT
  Age: 67 Year
  Sex: Female
  Weight: 70.31 kg

DRUGS (2)
  1. XELJANZ [Suspect]
     Active Substance: TOFACITINIB CITRATE
     Indication: RHEUMATOID ARTHRITIS
     Dosage: 5 MG, 2X/DAY
     Dates: start: 2013
  2. XELJANZ XR [Suspect]
     Active Substance: TOFACITINIB CITRATE
     Indication: RHEUMATOID ARTHRITIS
     Dosage: 11 MG, 1X/DAY (11MG IN THE MORNING AND 5MG IN AFTERNOON BY MOUTH)
     Route: 048
     Dates: start: 201606, end: 20160715

REACTIONS (5)
  - Pain [Unknown]
  - Drug effect incomplete [Unknown]
  - Injury [Not Recovered/Not Resolved]
  - Off label use [Unknown]
  - Activities of daily living impaired [Not Recovered/Not Resolved]

NARRATIVE: CASE EVENT DATE: 201605
